FAERS Safety Report 19425144 (Version 2)
Quarter: 2024Q3

REPORT INFORMATION
  Report Type: Spontaneous
  Country: FR (occurrence: FR)
  Receive Date: 20210617
  Receipt Date: 20240806
  Transmission Date: 20241017
  Serious: Yes (Life-Threatening, Hospitalization, Other)
  Sender: AUROBINDO
  Company Number: FR-AUROBINDO-AUR-APL-2021-024049

PATIENT
  Age: 62 Year
  Sex: Male

DRUGS (4)
  1. ALLOPURINOL [Suspect]
     Active Substance: ALLOPURINOL
     Indication: Product used for unknown indication
     Dosage: UNK
     Route: 065
  2. AMOXICILLIN [Suspect]
     Active Substance: AMOXICILLIN
     Indication: Odynophagia
     Dosage: UNK
     Route: 065
  3. AMOXICILLIN [Suspect]
     Active Substance: AMOXICILLIN
     Indication: Pharyngitis
     Dosage: UNK
     Route: 048
     Dates: start: 20090109, end: 20090114
  4. ACETAMINOPHEN [Concomitant]
     Active Substance: ACETAMINOPHEN
     Indication: Odynophagia
     Dosage: UNK
     Route: 065

REACTIONS (38)
  - Autoimmune thyroiditis [Unknown]
  - Drug reaction with eosinophilia and systemic symptoms [Unknown]
  - Haemophagocytic lymphohistiocytosis [Recovered/Resolved]
  - Graves^ disease [Unknown]
  - Condition aggravated [Unknown]
  - Blood thyroid stimulating hormone increased [Unknown]
  - Cholestasis [Unknown]
  - Face oedema [Unknown]
  - Goitre [Unknown]
  - Human herpesvirus 7 infection [Unknown]
  - Hyperthyroidism [Unknown]
  - Lymphadenopathy [Unknown]
  - Leukocytosis [Unknown]
  - Liver disorder [Unknown]
  - Mononucleosis syndrome [Unknown]
  - Pruritus [Unknown]
  - Pyrexia [Recovering/Resolving]
  - Pharyngitis [Unknown]
  - Renal impairment [Unknown]
  - Rash maculo-papular [Unknown]
  - Serum ferritin increased [Unknown]
  - Tachycardia [Unknown]
  - Tri-iodothyronine increased [Unknown]
  - Thyroxine free increased [Unknown]
  - Blood lactate dehydrogenase increased [Recovering/Resolving]
  - Blood triglycerides increased [Recovering/Resolving]
  - Dermatitis exfoliative generalised [Recovering/Resolving]
  - Hepatic cytolysis [Recovering/Resolving]
  - Human herpesvirus 6 infection reactivation [Recovering/Resolving]
  - Odynophagia [Recovering/Resolving]
  - Purpura [Recovering/Resolving]
  - Rash [Recovering/Resolving]
  - Transaminases increased [Recovering/Resolving]
  - Anaemia [Recovered/Resolved]
  - Epstein-Barr virus infection reactivation [Recovered/Resolved]
  - Pancytopenia [Recovered/Resolved]
  - Eosinophilia [Recovered/Resolved]
  - Rash morbilliform [Recovered/Resolved]

NARRATIVE: CASE EVENT DATE: 20090123
